FAERS Safety Report 6992298-0 (Version None)
Quarter: 2010Q3

REPORT INFORMATION
  Report Type: 
  Country: None (occurrence: None)
  Receive Date: 20100917
  Receipt Date: 20100913
  Transmission Date: 20110219
  Serious: Yes (Death, Hospitalization)
  Sender: FDA-Public Use
  Company Number: FR-ASTRAZENECA-2010SE43002

PATIENT
  Age: 82 Year
  Sex: Female

DRUGS (2)
  1. CANDESARTAN CILEXETIL/HYDROCHLOROTHIAZIDE (ATACAND HCT) [Suspect]
     Indication: HYPERTENSION
     Route: 048
     Dates: end: 20100801
  2. LASIX [Suspect]
     Indication: RENAL FAILURE CHRONIC
     Route: 048
     Dates: end: 20100801

REACTIONS (7)
  - CIRCULATORY COLLAPSE [None]
  - COLITIS ISCHAEMIC [None]
  - DIARRHOEA [None]
  - HYPOVOLAEMIC SHOCK [None]
  - OVERDOSE [None]
  - RENAL FAILURE [None]
  - VOMITING [None]
